FAERS Safety Report 5249486-3 (Version None)
Quarter: 2007Q1

REPORT INFORMATION
  Report Type: 
  Country: None (occurrence: None)
  Receive Date: 20070228
  Receipt Date: 20061205
  Transmission Date: 20070707
  Serious: No
  Sender: FDA-Public Use
  Company Number: US-GLAXOSMITHKLINE-A0630404A

PATIENT
  Age: 55 Year
  Sex: Male

DRUGS (4)
  1. VALTREX [Suspect]
     Dosage: 500MG PER DAY
     Route: 048
     Dates: start: 20061101
  2. TRICOR [Suspect]
     Dosage: 145MG SINGLE DOSE
     Route: 048
     Dates: start: 20061118
  3. ZETIA [Suspect]
     Dosage: 10MG PER DAY
     Route: 048
     Dates: end: 20061122
  4. LISINOPRIL [Concomitant]

REACTIONS (8)
  - BLOOD CREATINE PHOSPHOKINASE INCREASED [None]
  - HYPOAESTHESIA [None]
  - MUSCLE SPASMS [None]
  - MUSCULOSKELETAL PAIN [None]
  - MUSCULOSKELETAL STIFFNESS [None]
  - MYOSITIS [None]
  - PAIN IN EXTREMITY [None]
  - PARAESTHESIA [None]
